FAERS Safety Report 8933753 (Version 1)
Quarter: 2020Q3

REPORT INFORMATION
  Report Type: Report from Study
  Country: SV (occurrence: SV)
  Receive Date: 20121129
  Receipt Date: 20121129
  Transmission Date: 20201104
  Serious: Yes (Other)
  Sender: FDA-Public Use
  Company Number: SV-ROCHE-1160783

PATIENT
  Age: 78 Year
  Sex: Female

DRUGS (1)
  1. IBANDRONIC ACID. [Suspect]
     Active Substance: IBANDRONIC ACID
     Indication: OSTEOPOROSIS
     Route: 048
     Dates: start: 20081102

REACTIONS (2)
  - Fall [Unknown]
  - Bone fissure [Recovered/Resolved]

NARRATIVE: CASE EVENT DATE: 201108
